FAERS Safety Report 9748910 (Version 3)
Quarter: 2014Q1

REPORT INFORMATION
  Report Type: Spontaneous
  Country: US (occurrence: US)
  Receive Date: 20131212
  Receipt Date: 20140312
  Transmission Date: 20141002
  Serious: Yes (Death)
  Sender: FDA-Public Use
  Company Number: US-INCYTE CORPORATION-2013IN001664

PATIENT
  Age: 68 Year
  Sex: Female
  Weight: 73.3 kg

DRUGS (17)
  1. JAKAFI [Suspect]
     Indication: POLYCYTHAEMIA VERA
     Dosage: 10 MG, BID
     Route: 048
     Dates: start: 20130523, end: 2013
  2. JAKAFI [Suspect]
     Indication: MYELOFIBROSIS
     Dosage: NOT SPECIFIED
     Route: 048
     Dates: start: 2013, end: 2013
  3. JAKAFI [Suspect]
     Indication: SPLENOMEGALY
     Dosage: 5 MG, UNK
     Route: 048
     Dates: start: 201308
  4. JAKAFI [Suspect]
     Dosage: 15 MG, QD
     Route: 048
  5. COUMADIN [Concomitant]
     Dosage: 5 MG, UNK
     Route: 048
  6. SODIUM BICARBONATE [Concomitant]
     Dosage: 650 MG, UNK
     Route: 048
  7. MULTIVITAMIN [Concomitant]
  8. METHYLCOBALAMIN [Concomitant]
     Dosage: UNK
  9. HYDROCODONE BITARTRATE AND ACETAMINOPHEN [Concomitant]
     Dosage: 5/325 MG
     Route: 048
  10. CHOLECALCIFEROL [Concomitant]
  11. COENZYME Q10 [Concomitant]
  12. PARICALCITOL [Concomitant]
     Dosage: 1 MCG, UNK
     Route: 048
  13. ONDANSETRON [Concomitant]
     Dosage: 4 MG, ODT
  14. DOCUSATE [Concomitant]
     Dosage: 100 MG, UNK
     Route: 048
  15. POLYETHYLENE GLYCOL [Concomitant]
     Route: 048
  16. GABAPENTIN [Concomitant]
     Dosage: 300 MG, UNK
     Route: 048
  17. HYDROXYZINE [Concomitant]
     Dosage: 25 MG, UNK
     Route: 048

REACTIONS (5)
  - White blood cell count increased [Unknown]
  - Pain [Recovered/Resolved]
  - Drug dose omission [Recovered/Resolved]
  - Haemoglobin decreased [Unknown]
  - Blood count abnormal [Unknown]
